FAERS Safety Report 10034953 (Version 2)
Quarter: 2014Q2

REPORT INFORMATION
  Report Type: Spontaneous
  Country: US (occurrence: None)
  Receive Date: 20140321
  Receipt Date: 20140409
  Transmission Date: 20141212
  Serious: Yes (Other)
  Sender: FDA-Public Use
  Company Number: 2243164

PATIENT
  Age: 18 Year
  Sex: Male
  Weight: 75 kg

DRUGS (1)
  1. DEMEROL (MEPERIDINE HCL INJ, USP) CII (PETHIDINE HYDROCHLORIDE) [Suspect]
     Indication: CHILLS
     Dosage: 25 MG MILLIGRAM(S), UNKNOWN, INTRAVENOUS
     Route: 042
     Dates: start: 20140310, end: 20140310

REACTIONS (2)
  - Erythema [None]
  - Urticaria [None]
